FAERS Safety Report 14365887 (Version 1)
Quarter: 2018Q1

REPORT INFORMATION
  Report Type: Spontaneous
  Country: ES (occurrence: ES)
  Receive Date: 20180109
  Receipt Date: 20180109
  Transmission Date: 20180509
  Serious: Yes (Other)
  Sender: FDA-Public Use
  Company Number: ES-009507513-1801ESP000744

PATIENT
  Age: 68 Year
  Sex: Female

DRUGS (5)
  1. SITAGLIPTIN PHOSPHATE (+) METFORMIN HYDROCHLORIDE [Concomitant]
     Active Substance: METFORMIN HYDROCHLORIDE\SITAGLIPTIN PHOSPHATE
     Dosage: 1 DF, Q12H
     Route: 048
  2. CALCIFEDIOL [Concomitant]
     Active Substance: CALCIFEDIOL
     Dosage: UNK
     Route: 048
  3. TARDYFERON [Concomitant]
     Active Substance: FERROUS SULFATE
     Route: 048
  4. IBUPROFEN. [Concomitant]
     Active Substance: IBUPROFEN
     Dosage: AS NECESSARY
  5. LOSARTAN POTASSIUM. [Suspect]
     Active Substance: LOSARTAN POTASSIUM
     Dosage: 50 MG, Q12H
     Route: 048
     Dates: start: 2017, end: 20170912

REACTIONS (1)
  - Malabsorption [Recovered/Resolved]

NARRATIVE: CASE EVENT DATE: 20170822
